FAERS Safety Report 12548992 (Version 4)
Quarter: 2017Q3

REPORT INFORMATION
  Report Type: Spontaneous
  Country: US (occurrence: US)
  Receive Date: 20160712
  Receipt Date: 20170929
  Transmission Date: 20171127
  Serious: Yes (Death, Life-Threatening, Hospitalization, Other)
  Sender: FDA-Public Use
  Company Number: US-009507513-1607USA004754

PATIENT
  Age: 73 Year
  Sex: Female

DRUGS (5)
  1. ZOMETA [Suspect]
     Active Substance: ZOLEDRONIC ACID
     Dosage: A SINGLE DOSE
  2. RECLAST [Suspect]
     Active Substance: ZOLEDRONIC ACID
     Dosage: A SINGLE DOSE
  3. BORTEZOMIB [Concomitant]
     Active Substance: BORTEZOMIB
     Dosage: 3 DOSES
  4. DEXAMETHASONE. [Suspect]
     Active Substance: DEXAMETHASONE
     Route: 048
  5. LENALIDOMIDE [Concomitant]
     Active Substance: LENALIDOMIDE
     Dosage: 7 DOSES

REACTIONS (4)
  - Febrile neutropenia [Unknown]
  - Hypocalcaemia [Recovering/Resolving]
  - Acute kidney injury [Unknown]
  - Cardiac arrest [Fatal]
